FAERS Safety Report 5707146-6 (Version None)
Quarter: 2008Q2

REPORT INFORMATION
  Report Type: 
  Country: None (occurrence: None)
  Receive Date: 20080414
  Receipt Date: 20080414
  Transmission Date: 20081010
  Serious: Yes (Other)
  Sender: FDA-Public Use
  Company Number: None

PATIENT
  Sex: Female
  Weight: 49.8957 kg

DRUGS (1)
  1. SINGULAIR [Suspect]
     Indication: ECZEMA
     Dosage: 10 MG ONE PILL DAILY PO
     Route: 048
     Dates: start: 20080115, end: 20080325

REACTIONS (7)
  - DEPRESSION [None]
  - EMOTIONAL DISORDER [None]
  - INITIAL INSOMNIA [None]
  - LETHARGY [None]
  - LISTLESS [None]
  - MIDDLE INSOMNIA [None]
  - SERUM SEROTONIN DECREASED [None]
